FAERS Safety Report 25167946 (Version 1)
Quarter: 2025Q2

REPORT INFORMATION
  Report Type: Spontaneous
  Country: US (occurrence: None)
  Receive Date: 20250407
  Receipt Date: 20250407
  Transmission Date: 20250717
  Serious: No
  Sender: FDA-CTU
  Company Number: None

PATIENT

DRUGS (1)
  1. DALFAMPRIDINE [Suspect]
     Active Substance: DALFAMPRIDINE

REACTIONS (7)
  - Multiple sclerosis relapse [None]
  - Knee arthroplasty [None]
  - Dizziness [None]
  - Asthenia [None]
  - Fall [None]
  - Procedural pain [None]
  - Arthralgia [None]
